FAERS Safety Report 22030275 (Version 1)
Quarter: 2023Q1

REPORT INFORMATION
  Report Type: Spontaneous
  Country: JP (occurrence: JP)
  Receive Date: 20230223
  Receipt Date: 20230223
  Transmission Date: 20230418
  Serious: Yes (Hospitalization, Other)
  Sender: FDA-Public Use
  Company Number: JP-ONO-2023JP004448

PATIENT
  Age: 8 Decade
  Sex: Male

DRUGS (1)
  1. OPDIVO [Suspect]
     Active Substance: NIVOLUMAB
     Indication: Gastric cancer
     Dosage: UNK
     Route: 041

REACTIONS (8)
  - Gastrointestinal haemorrhage [Unknown]
  - Immune-mediated enterocolitis [Unknown]
  - Faeces discoloured [Unknown]
  - Abdominal pain lower [Unknown]
  - Diarrhoea [Unknown]
  - Abdominal distension [Unknown]
  - Blood urea increased [Unknown]
  - Blood potassium increased [Unknown]
